FAERS Safety Report 9783215 (Version 1)
Quarter: 2013Q4

REPORT INFORMATION
  Report Type: Spontaneous
  Country: CH (occurrence: CH)
  Receive Date: 20131226
  Receipt Date: 20131226
  Transmission Date: 20140711
  Serious: Yes (Life-Threatening, Hospitalization)
  Sender: FDA-Public Use
  Company Number: PHHY2013CH150141

PATIENT
  Age: 61 Year
  Sex: Male

DRUGS (7)
  1. METFIN [Suspect]
     Dosage: 2000 MG, PER DAY
     Route: 048
     Dates: start: 200705
  2. SINTROM [Concomitant]
     Route: 048
  3. CORDARONE [Concomitant]
     Dosage: 200 MG, QD
     Route: 048
  4. TENORMIN [Concomitant]
     Dosage: 25 MG, QD
     Route: 048
  5. SELIPRAN [Concomitant]
     Dosage: 40 MG, QD
     Route: 048
  6. NEXIUM [Concomitant]
     Dosage: 40 MG, QD
     Route: 048
  7. SEROPRAM [Concomitant]
     Dosage: 20 MG, QD
     Route: 048

REACTIONS (8)
  - Shock [Recovered/Resolved]
  - Lactic acidosis [Recovered/Resolved]
  - Asthenia [Recovered/Resolved]
  - Abdominal pain [Recovered/Resolved]
  - Hypotension [Recovered/Resolved]
  - Heart rate increased [Recovered/Resolved]
  - Dyspnoea [Recovered/Resolved]
  - Orthopnoea [Recovered/Resolved]
